FAERS Safety Report 10764877 (Version 2)
Quarter: 2015Q1

REPORT INFORMATION
  Report Type: Spontaneous
  Country: US (occurrence: None)
  Receive Date: 20150203
  Receipt Date: 20150218
  Transmission Date: 20150721
  Serious: Yes (Death)
  Sender: FDA-Public Use
  Company Number: INS201501-000030

PATIENT
  Age: 47 Year
  Sex: Male
  Weight: 59.87 kg

DRUGS (11)
  1. CLINDAMYCIN HYDROCHLORIDE. [Concomitant]
     Active Substance: CLINDAMYCIN HYDROCHLORIDE
  2. MEDROL [Concomitant]
     Active Substance: METHYLPREDNISOLONE
  3. ULTRAM [Concomitant]
     Active Substance: TRAMADOL HYDROCHLORIDE
  4. SUBSYS [Suspect]
     Active Substance: FENTANYL
     Indication: PAIN
     Dosage: 120 UNITS
     Dates: start: 20141119
  5. NORCO [Concomitant]
     Active Substance: ACETAMINOPHEN\HYDROCODONE BITARTRATE
  6. LYRICA [Concomitant]
     Active Substance: PREGABALIN
  7. FLEXERIL (CYCLOBENZAPRINE) [Concomitant]
  8. DURAGESIC (FENTANYL) [Concomitant]
  9. OXYCODONE [Concomitant]
     Active Substance: OXYCODONE
  10. SILVADENE (SILVER SULFADIAZINE) [Concomitant]
  11. CYMBALTA [Concomitant]
     Active Substance: DULOXETINE HYDROCHLORIDE

REACTIONS (2)
  - Myocardial infarction [None]
  - Off label use [None]

NARRATIVE: CASE EVENT DATE: 20150117
